FAERS Safety Report 5087008-0 (Version None)
Quarter: 2006Q3

REPORT INFORMATION
  Report Type: 
  Country: None (occurrence: None)
  Receive Date: 20060821
  Receipt Date: 20060807
  Transmission Date: 20061208
  Serious: Yes (Hospitalization)
  Sender: FDA-Public Use
  Company Number: 2006098961

PATIENT
  Age: 81 Year
  Sex: Female
  Weight: 57.9 kg

DRUGS (1)
  1. SUTENT [Suspect]
     Indication: MESOTHELIOMA
     Dosage: 50 MG (DAILY INTERVAL:  28 DAY CYCLE), ORAL
     Route: 048
     Dates: start: 20060719

REACTIONS (4)
  - ANOREXIA [None]
  - DEHYDRATION [None]
  - FALL [None]
  - SYNCOPE VASOVAGAL [None]
